FAERS Safety Report 4751840-0 (Version None)
Quarter: 2005Q3

REPORT INFORMATION
  Report Type: 
  Country: None (occurrence: None)
  Receive Date: 20050822
  Receipt Date: 20050506
  Transmission Date: 20060218
  Serious: Yes (Other)
  Sender: FDA-Public Use
  Company Number: PHEH2005US03854

PATIENT
  Age: 47 Year
  Sex: Female

DRUGS (8)
  1. ZELNORM [Suspect]
     Indication: CONSTIPATION
     Dosage: 6 MG, BID, ORAL; 1/2 6 MG TABLET, BID, ORAL; UNK MG, BID, ORAL
     Route: 048
     Dates: start: 20050208
  2. ZELNORM [Suspect]
     Indication: CONSTIPATION
     Dosage: 6 MG, BID, ORAL; 1/2 6 MG TABLET, BID, ORAL; UNK MG, BID, ORAL
     Route: 048
     Dates: start: 20050209
  3. CITRUCEL (METHYLCELLULOSE) [Concomitant]
  4. MILK OF MAGNESIA TAB [Concomitant]
  5. MIRALAX [Concomitant]
  6. LEXAPRO [Concomitant]
  7. FIORICET [Concomitant]
  8. SERAQUIN [Concomitant]

REACTIONS (6)
  - ABDOMINAL DISTENSION [None]
  - CONSTIPATION [None]
  - DRUG INEFFECTIVE [None]
  - HEADACHE [None]
  - SYNCOPE [None]
  - TREMOR [None]
